FAERS Safety Report 22000550 (Version 1)
Quarter: 2023Q1

REPORT INFORMATION
  Report Type: Spontaneous
  Country: US (occurrence: None)
  Receive Date: 20230215
  Receipt Date: 20230215
  Transmission Date: 20230418
  Serious: Yes (Hospitalization, Other)
  Sender: FDA-Public Use
  Company Number: None

PATIENT
  Age: 59 Year
  Sex: Male
  Weight: 132.75 kg

DRUGS (9)
  1. OLMESARTAN MEDOXOMIL [Suspect]
     Active Substance: OLMESARTAN MEDOXOMIL
     Indication: Hypertension
     Dosage: OTHER QUANTITY : 90 TABLET(S);?FREQUENCY : DAILY;?
     Route: 048
     Dates: start: 20221120, end: 20230215
  2. METOPROLOL [Concomitant]
     Active Substance: METOPROLOL
  3. Chlorthaliodone [Concomitant]
  4. ROSUVASTATIN [Concomitant]
     Active Substance: ROSUVASTATIN
  5. Olmasarten [Concomitant]
  6. medoxomil [Concomitant]
  7. NAPROSYN [Concomitant]
     Active Substance: NAPROXEN
  8. PEPCID [Concomitant]
     Active Substance: FAMOTIDINE
  9. Gasx [Concomitant]

REACTIONS (2)
  - Intestinal angioedema [None]
  - Gastrointestinal infection [None]

NARRATIVE: CASE EVENT DATE: 20230215
